FAERS Safety Report 5649723-7 (Version None)
Quarter: 2008Q1

REPORT INFORMATION
  Report Type: 
  Country: None (occurrence: None)
  Receive Date: 20080304
  Receipt Date: 20080228
  Transmission Date: 20080703
  Serious: Yes (Death, Hospitalization)
  Sender: FDA-Public Use
  Company Number: US-BOEHRINGER INGELHEIM GMBH, GERMANY-2008-DE-01285GD

PATIENT
  Age: 49 Year
  Sex: Male

DRUGS (2)
  1. PREDNISONE TAB [Suspect]
     Indication: RESPIRATORY DISORDER
     Route: 048
  2. ANTIBIOTICS [Concomitant]
     Indication: RESPIRATORY DISORDER

REACTIONS (5)
  - ACUTE INTERSTITIAL PNEUMONITIS [None]
  - ACUTE RESPIRATORY DISTRESS SYNDROME [None]
  - ADENOVIRUS INFECTION [None]
  - HYPOTENSION [None]
  - RENAL FAILURE ACUTE [None]
